FAERS Safety Report 6277846-0 (Version None)
Quarter: 2009Q3

REPORT INFORMATION
  Report Type: 
  Country: None (occurrence: None)
  Receive Date: 20090717
  Receipt Date: 20090717
  Transmission Date: 20100115
  Serious: Yes (Hospitalization)
  Sender: FDA-Public Use
  Company Number: None

PATIENT
  Age: 10 Year
  Sex: Male
  Weight: 32 kg

DRUGS (4)
  1. CLOFARABINE [Suspect]
     Indication: LEUKAEMIA RECURRENT
     Dosage: 58 MG ONCE DAILY IV DRIP
     Route: 041
     Dates: start: 20090501, end: 20090505
  2. CLOFARABINE [Suspect]
     Indication: LEUKAEMIA RECURRENT
     Dosage: 57 MG ONCE DAILY IV DRIP
     Route: 041
     Dates: start: 20090519, end: 20090523
  3. ETOPOSIDE [Concomitant]
  4. IFOSFAMIDE [Concomitant]

REACTIONS (4)
  - CEREBRAL TOXOPLASMOSIS [None]
  - CONVULSION [None]
  - NEUTROPENIA [None]
  - PYREXIA [None]
